FAERS Safety Report 7449129-4 (Version None)
Quarter: 2011Q2

REPORT INFORMATION
  Report Type: 
  Country: None (occurrence: None)
  Receive Date: 20110502
  Receipt Date: 20110331
  Transmission Date: 20111010
  Serious: Yes (Life-Threatening, Hospitalization, Other)
  Sender: FDA-Public Use
  Company Number: US-BAYER-2010-005349

PATIENT
  Age: 28 Year
  Sex: Female
  Weight: 52 kg

DRUGS (7)
  1. EFFEXOR [Concomitant]
  2. PEPTO BISMOL [Concomitant]
     Dosage: UNK
     Dates: start: 20081201
  3. LEVAQUIN [Concomitant]
     Dosage: UNK
     Dates: start: 20081201
  4. LEXAPRO [Concomitant]
     Indication: AFFECTIVE DISORDER
  5. NEXIUM [Concomitant]
     Dosage: UNK
     Dates: start: 20081201
  6. TRAZODONE HCL [Concomitant]
     Dosage: 25 MG, HS
  7. YASMIN [Suspect]
     Indication: PREMENSTRUAL SYNDROME

REACTIONS (8)
  - INJURY [None]
  - BILIARY DYSKINESIA [None]
  - CHOLECYSTECTOMY [None]
  - THROMBOSIS [None]
  - DISABILITY [None]
  - PAIN [None]
  - CHOLECYSTITIS CHRONIC [None]
  - EMOTIONAL DISTRESS [None]
